FAERS Safety Report 7505966-9 (Version None)
Quarter: 2011Q2

REPORT INFORMATION
  Report Type: 
  Country: None (occurrence: None)
  Receive Date: 20110526
  Receipt Date: 20110513
  Transmission Date: 20111010
  Serious: Yes (Other)
  Sender: FDA-Public Use
  Company Number: PHHY2011US41456

PATIENT
  Sex: Male

DRUGS (1)
  1. GLEEVEC [Suspect]
     Indication: CHRONIC MYELOID LEUKAEMIA
     Dosage: 400 MG, DAILY
     Route: 048
     Dates: start: 20110419

REACTIONS (5)
  - INCREASED UPPER AIRWAY SECRETION [None]
  - COUGH [None]
  - RED BLOOD CELL COUNT DECREASED [None]
  - BRONCHITIS [None]
  - VOMITING [None]
